FAERS Safety Report 19309440 (Version 2)
Quarter: 2021Q2

REPORT INFORMATION
  Report Type: Report from Study
  Country: IL (occurrence: IL)
  Receive Date: 20210526
  Receipt Date: 20210602
  Transmission Date: 20210717
  Serious: Yes (Hospitalization)
  Sender: FDA-Public Use
  Company Number: IL-EISAI MEDICAL RESEARCH-EC-2021-093333

PATIENT
  Age: 70 Year
  Sex: Female

DRUGS (9)
  1. NIFEDILONG [Concomitant]
     Dates: start: 202001
  2. LETROZOLE. [Concomitant]
     Active Substance: LETROZOLE
     Dates: start: 2017
  3. VECTOR [Concomitant]
     Active Substance: VALSARTAN
     Dates: start: 202001
  4. CARDILOC [Concomitant]
     Active Substance: BISOPROLOL FUMARATE
     Dates: start: 202012
  5. SIMVAXON [Concomitant]
     Dates: start: 202006
  6. PEMBROLIZUMAB. [Suspect]
     Active Substance: PEMBROLIZUMAB
     Indication: OVARIAN CANCER
     Dosage: DOSE UNKNOWN
     Route: 041
     Dates: start: 20210502, end: 20210516
  7. LENVATINIB [Suspect]
     Active Substance: LENVATINIB
     Indication: OVARIAN CANCER
     Dosage: DOSE UNKNOWN
     Route: 048
     Dates: start: 20210502, end: 20210516
  8. ELTROXIN [Concomitant]
     Active Substance: LEVOTHYROXINE
     Dates: start: 202002
  9. CADEX [Concomitant]
     Dates: start: 20210506

REACTIONS (1)
  - Sepsis [Unknown]

NARRATIVE: CASE EVENT DATE: 20210516
